FAERS Safety Report 20635949 (Version 1)
Quarter: 2022Q1

REPORT INFORMATION
  Report Type: Spontaneous
  Country: PL (occurrence: PL)
  Receive Date: 20220325
  Receipt Date: 20220325
  Transmission Date: 20220423
  Serious: Yes (Other)
  Sender: FDA-Public Use
  Company Number: PL-NOVARTISPH-NVSC2022PL067164

PATIENT
  Age: 74 Year
  Sex: Female

DRUGS (8)
  1. KISQALI [Suspect]
     Active Substance: RIBOCICLIB
     Indication: Breast cancer
     Dosage: 600 MG, QD
     Route: 065
     Dates: start: 20190114, end: 20190509
  2. KISQALI [Suspect]
     Active Substance: RIBOCICLIB
     Dosage: 400 MG, QD
     Route: 065
     Dates: start: 20190613
  3. LETROZOLE [Concomitant]
     Active Substance: LETROZOLE
     Indication: Breast cancer
     Dosage: UNK
     Route: 065
  4. CO PRESTARIUM [Concomitant]
     Indication: Product used for unknown indication
     Dosage: 1 DOSAGE FORM, QD (10/10)
     Route: 065
  5. INDAPAMIDE [Concomitant]
     Active Substance: INDAPAMIDE
     Indication: Product used for unknown indication
     Dosage: 1 DOSAGE FORM, QD (MORNING)
     Route: 065
  6. LOSARTAN POTASSIUM [Concomitant]
     Active Substance: LOSARTAN POTASSIUM
     Indication: Product used for unknown indication
     Dosage: 50 MG, QD  (EVEING)
     Route: 065
  7. ATORVASTATIN [Concomitant]
     Active Substance: ATORVASTATIN
     Indication: Product used for unknown indication
     Dosage: 20 MG, QD
     Route: 065
  8. ACARD [Concomitant]
     Indication: Product used for unknown indication
     Dosage: 75 MG, QD
     Route: 065

REACTIONS (8)
  - Atrial fibrillation [Recovered/Resolved]
  - Neutropenia [Recovered/Resolved]
  - Electrocardiogram QT prolonged [Recovered/Resolved]
  - Neutropenia [Recovered/Resolved]
  - Heart rate increased [Recovered/Resolved]
  - Haematotoxicity [Recovered/Resolved]
  - Haematotoxicity [Recovered/Resolved]
  - Heart rate irregular [Unknown]

NARRATIVE: CASE EVENT DATE: 20190215
